FAERS Safety Report 10638137 (Version 1)
Quarter: 2014Q4

REPORT INFORMATION
  Report Type: Spontaneous
  Country: US (occurrence: None)
  Receive Date: 20141121
  Receipt Date: 20141121
  Transmission Date: 20150529
  Serious: No
  Sender: FDA-Public Use
  Company Number: 163-10004-14082283

PATIENT
  Age: 73 Year
  Sex: Female
  Weight: 68.04 kg

DRUGS (2)
  1. CLOBETASOL (CLOBETASOL) [Concomitant]
     Active Substance: CLOBETASOL
  2. OTEZLA [Suspect]
     Active Substance: APREMILAST
     Indication: PSORIASIS
     Dosage: 60 MG, 2 IN 1 D, PO
     Route: 048
     Dates: start: 20140721, end: 20140810

REACTIONS (8)
  - Nausea [None]
  - Hypertension [None]
  - Nasal congestion [None]
  - Headache [None]
  - Insomnia [None]
  - Depressed mood [None]
  - Malaise [None]
  - Frequent bowel movements [None]

NARRATIVE: CASE EVENT DATE: 201407
